FAERS Safety Report 7062630-0 (Version None)
Quarter: 2010Q4

REPORT INFORMATION
  Report Type: 
  Country: None (occurrence: None)
  Receive Date: 20101026
  Receipt Date: 20100524
  Transmission Date: 20110411
  Serious: No
  Sender: FDA-Public Use
  Company Number: US-PFIZER INC-2006075002

PATIENT
  Sex: Female
  Weight: 56.25 kg

DRUGS (3)
  1. LIPITOR [Suspect]
     Dosage: UNK
  2. ENALAPRIL MALEATE [Concomitant]
     Indication: HYPERTENSION
     Dosage: UNK
     Route: 065
  3. ACETYLSALICYLIC ACID [Concomitant]
     Dosage: UNK
     Route: 065

REACTIONS (3)
  - BLOOD CHOLESTEROL ABNORMAL [None]
  - BONE PAIN [None]
  - DYSPHAGIA [None]
